FAERS Safety Report 5929768-X (Version None)
Quarter: 2008Q4

REPORT INFORMATION
  Report Type: 
  Country: None (occurrence: None)
  Receive Date: 20081024
  Receipt Date: 20081015
  Transmission Date: 20090506
  Serious: Yes (Death, Hospitalization)
  Sender: FDA-Public Use
  Company Number: EG-WYE-H06409008

PATIENT
  Age: 32 Year
  Sex: Male

DRUGS (1)
  1. SIROLIMUS [Suspect]
     Indication: PROPHYLAXIS AGAINST TRANSPLANT REJECTION
     Route: 048
     Dates: start: 20050101, end: 20080920

REACTIONS (4)
  - CONDITION AGGRAVATED [None]
  - HEPATITIS B [None]
  - HEPATITIS FULMINANT [None]
  - URINARY TRACT INFECTION [None]
